FAERS Safety Report 9678180 (Version 2)
Quarter: 2013Q4

REPORT INFORMATION
  Report Type: Report from Study
  Country: GB (occurrence: GB)
  Receive Date: 20131108
  Receipt Date: 20131125
  Transmission Date: 20140711
  Serious: Yes (Hospitalization)
  Sender: FDA-Public Use
  Company Number: PHHO2013GB014224

PATIENT
  Sex: 0

DRUGS (15)
  1. BLINDED ACZ885 [Suspect]
     Indication: CARDIOVASCULAR EVENT PROPHYLAXIS
     Dosage: CODE NOT BROKEN
     Route: 058
     Dates: start: 20130214
  2. BLINDED NO TREATMENT RECEIVED [Suspect]
     Indication: CARDIOVASCULAR EVENT PROPHYLAXIS
     Dosage: CODE NOT BROKEN
     Route: 058
     Dates: start: 20130214
  3. BLINDED PLACEBO [Suspect]
     Indication: CARDIOVASCULAR EVENT PROPHYLAXIS
     Dosage: CODE NOT BROKEN
     Route: 058
     Dates: start: 20130214
  4. EMCOR [Suspect]
     Indication: ISCHAEMIC HEART DISEASE PROPHYLAXIS
     Dosage: 1.25 MG, QD
     Route: 048
     Dates: start: 20111129
  5. EMCOR [Suspect]
     Indication: PERCUTANEOUS CORONARY INTERVENTION
     Dosage: 2.5 MG, QD
     Route: 048
     Dates: start: 20131002
  6. NICORANDIL [Concomitant]
     Dosage: 10 MG, QD
     Route: 048
     Dates: start: 20130211, end: 20131023
  7. CO-CODAMOL [Concomitant]
     Dosage: 30 MG+500 MG, TAKE 1 OR 2 4 TIMES A DAY
     Route: 048
     Dates: start: 20120806, end: 20131023
  8. ASPIRIN [Concomitant]
     Dosage: 75 MG, QD
     Route: 048
     Dates: start: 20101223, end: 20131023
  9. AMLODIPINE [Concomitant]
     Dosage: 5 MG, QD
     Route: 048
     Dates: start: 20130716, end: 20131023
  10. RAMIPRIL [Concomitant]
     Dosage: 2.5 MG, QD
     Route: 048
     Dates: start: 20110805, end: 20131023
  11. METFORMIN [Concomitant]
     Dosage: 500 MG, QID (2 MORNING, AND 2 EVENING)
     Route: 048
     Dates: start: 20110527, end: 20131023
  12. OMEPRAZOL ^ACYFABRIK^ [Concomitant]
     Indication: PROPHYLAXIS
     Dosage: 20 MG, QD
     Route: 048
     Dates: start: 20120104, end: 20131023
  13. ATORVASTATIN [Concomitant]
     Dosage: 20 MG, QHS
     Dates: start: 20130801, end: 20131023
  14. BEZAFIBRATE [Concomitant]
     Dosage: 200 MG, TID
     Route: 048
     Dates: start: 20130801, end: 20131023
  15. GABAPENTIN [Concomitant]
     Dosage: 300 MG, TID
     Route: 048
     Dates: start: 20130830, end: 20131023

REACTIONS (1)
  - Palpitations [Recovered/Resolved]
